FAERS Safety Report 6426122-1 (Version None)
Quarter: 2009Q4

REPORT INFORMATION
  Report Type: 
  Country: None (occurrence: None)
  Receive Date: 20091103
  Receipt Date: 20091103
  Transmission Date: 20100525
  Serious: No
  Sender: FDA-Public Use
  Company Number: None

PATIENT
  Age: 83 Year
  Sex: Male

DRUGS (2)
  1. FENTANYL-100 [Suspect]
     Dosage: IV
     Route: 042
     Dates: start: 20090211, end: 20090211
  2. MIDAZOLAM HCL [Suspect]
     Dosage: IV
     Route: 042
     Dates: start: 20090211, end: 20090211

REACTIONS (2)
  - DRUG EFFECT PROLONGED [None]
  - SEDATION [None]
